FAERS Safety Report 7006272-1 (Version None)
Quarter: 2010Q3

REPORT INFORMATION
  Report Type: 
  Country: None (occurrence: None)
  Receive Date: 20100917
  Receipt Date: 20100903
  Transmission Date: 20110219
  Serious: Yes (Other)
  Sender: FDA-Public Use
  Company Number: 018487

PATIENT
  Age: 44 Year
  Sex: Female

DRUGS (1)
  1. KEPPRA [Suspect]
     Indication: EPILEPSY
     Dosage: (2000 MG ORAL)
     Route: 048
     Dates: start: 20100801, end: 20100801

REACTIONS (2)
  - LOSS OF CONSCIOUSNESS [None]
  - SUICIDE ATTEMPT [None]
